FAERS Safety Report 8781477 (Version 1)
Quarter: 2012Q4

REPORT INFORMATION
  Report Type: 
  Country: DE (occurrence: DE)
  Receive Date: 20120913
  Receipt Date: 20120913
  Transmission Date: 20130627
  Serious: Yes (Hospitalization, Other)
  Sender: FDA-Public Use
  Company Number: PHHY2012DE078319

PATIENT
  Age: 49 Year
  Sex: Female

DRUGS (2)
  1. DEXAMETHASONE [Suspect]
     Indication: SPINAL DISORDER
     Dosage: 4 mg, UNK
  2. DICLOFENAC [Concomitant]

REACTIONS (3)
  - Skin necrosis [Unknown]
  - Infection [Unknown]
  - Wrong technique in drug usage process [Unknown]
